FAERS Safety Report 9287966 (Version 2)
Quarter: 2013Q2

REPORT INFORMATION
  Report Type: Spontaneous
  Country: FR (occurrence: FR)
  Receive Date: 20130514
  Receipt Date: 20130606
  Transmission Date: 20140414
  Serious: Yes (Death, Hospitalization)
  Sender: FDA-Public Use
  Company Number: FR-MERCK-1305FRA002206

PATIENT
  Age: 83 Year
  Sex: Female

DRUGS (1)
  1. ORGARAN [Suspect]
     Indication: HEPARIN-INDUCED THROMBOCYTOPENIA
     Dosage: 1 DF, QD
     Route: 058
     Dates: start: 20130419, end: 20130422

REACTIONS (1)
  - Condition aggravated [Fatal]
